FAERS Safety Report 6124125-8 (Version None)
Quarter: 2009Q1

REPORT INFORMATION
  Report Type: 
  Country: None (occurrence: None)
  Receive Date: 20090319
  Receipt Date: 20090309
  Transmission Date: 20090719
  Serious: Yes (Other)
  Sender: FDA-Public Use
  Company Number: ZA-ROCHE-620325

PATIENT
  Sex: Female

DRUGS (1)
  1. ISOTRETINOIN [Suspect]
     Indication: ACNE
     Dosage: FREQUENCY REPORTED AS DAILY
     Route: 048
     Dates: start: 20090201

REACTIONS (4)
  - ANXIETY [None]
  - DYSPNOEA [None]
  - ILL-DEFINED DISORDER [None]
  - MYALGIA [None]
